FAERS Safety Report 7540928-7 (Version None)
Quarter: 2011Q2

REPORT INFORMATION
  Report Type: 
  Country: None (occurrence: None)
  Receive Date: 20110610
  Receipt Date: 20110529
  Transmission Date: 20111010
  Serious: Yes (Hospitalization, Other)
  Sender: FDA-Public Use
  Company Number: DE-PFIZER INC-2011116396

PATIENT
  Age: 23 Year
  Sex: Female

DRUGS (1)
  1. NICORETTE [Suspect]
     Indication: INTENTIONAL SELF-INJURY
     Dosage: APPROXIMATE 33 MG DAILY
     Route: 042

REACTIONS (11)
  - EUPHORIC MOOD [None]
  - FEELING OF RELAXATION [None]
  - INCORRECT ROUTE OF DRUG ADMINISTRATION [None]
  - PARAESTHESIA [None]
  - FEELING COLD [None]
  - CHEST DISCOMFORT [None]
  - DRUG ABUSE [None]
  - SUICIDE ATTEMPT [None]
  - NICOTINE DEPENDENCE [None]
  - COUGH [None]
  - WITHDRAWAL SYNDROME [None]
